FAERS Safety Report 16282319 (Version 4)
Quarter: 2019Q2

REPORT INFORMATION
  Report Type: Spontaneous
  Country: ES (occurrence: ES)
  Receive Date: 20190507
  Receipt Date: 20190521
  Transmission Date: 20190711
  Serious: Yes (Hospitalization)
  Sender: FDA-Public Use
  Company Number: ES-009507513-1904ESP013038

PATIENT
  Age: 62 Year
  Sex: Male

DRUGS (1)
  1. CELESTONE CRONODOSE [Suspect]
     Active Substance: BETAMETHASONE
     Indication: TENDONITIS
     Dosage: 2 MILLILITER, QD, 5 INJECTIONS IN THE BUTTOCKS
     Route: 030
     Dates: start: 201904, end: 201904

REACTIONS (5)
  - Speech disorder [Unknown]
  - Prescribed overdose [Unknown]
  - Tremor [Not Recovered/Not Resolved]
  - Hypertension [Not Recovered/Not Resolved]
  - Hypertensive encephalopathy [Not Recovered/Not Resolved]

NARRATIVE: CASE EVENT DATE: 201904
